FAERS Safety Report 15823348 (Version 12)
Quarter: 2024Q2

REPORT INFORMATION
  Report Type: Spontaneous
  Country: US (occurrence: US)
  Receive Date: 20190114
  Receipt Date: 20240527
  Transmission Date: 20240716
  Serious: Yes (Hospitalization)
  Sender: FDA-Public Use
  Company Number: US-PFIZER INC-2019016047

PATIENT
  Age: 78 Year
  Sex: Female

DRUGS (2)
  1. XELJANZ [Suspect]
     Active Substance: TOFACITINIB CITRATE
     Indication: Rheumatoid arthritis
     Dosage: 5 MG, 1X/DAY
     Route: 048
  2. XELJANZ [Suspect]
     Active Substance: TOFACITINIB CITRATE
     Dosage: 5 MG, 2X/DAY
     Route: 048

REACTIONS (8)
  - COVID-19 [Recovering/Resolving]
  - Product prescribing error [Unknown]
  - Intentional product use issue [Unknown]
  - Nasopharyngitis [Recovered/Resolved]
  - Illness [Unknown]
  - Confusional state [Unknown]
  - Tooth loss [Unknown]
  - Tooth extraction [Unknown]
